FAERS Safety Report 7411225-5 (Version None)
Quarter: 2011Q2

REPORT INFORMATION
  Report Type: 
  Country: None (occurrence: None)
  Receive Date: 20110413
  Receipt Date: 20100416
  Transmission Date: 20111010
  Serious: Yes (Other)
  Sender: FDA-Public Use
  Company Number: US-BRISTOL-MYERS SQUIBB COMPANY-15056534

PATIENT
  Age: 4 Decade
  Sex: Female

DRUGS (1)
  1. ERBITUX [Suspect]
     Indication: COLORECTAL CANCER
     Dosage: 1ST INF LAST WEEK(APR2010). RECHALLENGED
     Route: 042
     Dates: start: 20100326

REACTIONS (1)
  - INFUSION RELATED REACTION [None]
